FAERS Safety Report 10509149 (Version 1)
Quarter: 2014Q4

REPORT INFORMATION
  Report Type: Spontaneous
  Country: DE (occurrence: DE)
  Receive Date: 20141009
  Receipt Date: 20141009
  Transmission Date: 20150528
  Serious: Yes (Other)
  Sender: FDA-Public Use
  Company Number: DE-TEVA-512424GER

PATIENT
  Age: 33 Year
  Sex: Female

DRUGS (2)
  1. VENLAFAXINE [Suspect]
     Active Substance: VENLAFAXINE HYDROCHLORIDE
     Indication: DEPRESSION
     Dosage: 250 [MG/D ]/ REDUCTION TO 225 MG/D
     Route: 048
     Dates: start: 20121123, end: 20130801
  2. RISPERIDONE. [Suspect]
     Active Substance: RISPERIDONE
     Indication: DEPRESSION
     Dosage: 4 MILLIGRAM DAILY;
     Route: 048
     Dates: start: 20121123, end: 20130504

REACTIONS (2)
  - Live birth [Unknown]
  - Gestational diabetes [Recovered/Resolved]
